FAERS Safety Report 15595065 (Version 1)
Quarter: 2018Q4

REPORT INFORMATION
  Report Type: Spontaneous
  Country: DE (occurrence: DE)
  Receive Date: 20181106
  Receipt Date: 20181106
  Transmission Date: 20190205
  Serious: Yes (Death, Hospitalization)
  Sender: FDA-Public Use
  Company Number: PHHY2018DE147479

PATIENT
  Age: 73 Year
  Sex: Female
  Weight: 73 kg

DRUGS (2)
  1. DOCETAXEL. [Suspect]
     Active Substance: DOCETAXEL
     Indication: NON-SMALL CELL LUNG CANCER
     Dosage: 134 MG, QD (LAST DOSAGE BEFORE THE EVENT ANEMIA OCCURRED WAS 134MG)
     Route: 065
     Dates: start: 20170119, end: 20170209
  2. BIBF 1120 [Suspect]
     Active Substance: NINTEDANIB
     Indication: NON-SMALL CELL LUNG CANCER
     Dosage: 400 MG, QD (LAST DOSE BEFORE RESPIRATORY EXHAUSTION WITH PLEURAL EFFUSION: 200MG; LAST DOSE BEFORE)
     Route: 065
     Dates: start: 20170120, end: 20170224

REACTIONS (3)
  - Anaemia [Recovering/Resolving]
  - Pleural effusion [Fatal]
  - Respiratory fatigue [Fatal]

NARRATIVE: CASE EVENT DATE: 20170307
